FAERS Safety Report 18608234 (Version 1)
Quarter: 2020Q4

REPORT INFORMATION
  Report Type: Report from Study
  Country: US (occurrence: US)
  Receive Date: 20201212
  Receipt Date: 20201212
  Transmission Date: 20210114
  Serious: Yes (Other)
  Sender: FDA-Public Use
  Company Number: NVSC2020US325170

PATIENT
  Sex: Female

DRUGS (4)
  1. ENTRESTO [Suspect]
     Active Substance: SACUBITRIL\VALSARTAN
     Indication: PRODUCT USED FOR UNKNOWN INDICATION
     Dosage: UNK
     Route: 065
  2. LOSARTAN. [Suspect]
     Active Substance: LOSARTAN
     Indication: PRODUCT USED FOR UNKNOWN INDICATION
     Dosage: UNK
     Route: 065
  3. AMLODIPINE [Suspect]
     Active Substance: AMLODIPINE BESYLATE
     Indication: PRODUCT USED FOR UNKNOWN INDICATION
     Dosage: UNK
     Route: 065
  4. TOPROL XL [Concomitant]
     Active Substance: METOPROLOL SUCCINATE
     Indication: PRODUCT USED FOR UNKNOWN INDICATION
     Dosage: UNK
     Route: 065

REACTIONS (14)
  - Breast cancer stage III [Unknown]
  - Crying [Unknown]
  - Product dose omission issue [Unknown]
  - Rheumatoid arthritis [Unknown]
  - Self esteem decreased [Unknown]
  - Fear [Unknown]
  - Depressed mood [Unknown]
  - Diabetes mellitus [Unknown]
  - Ovarian cancer [Unknown]
  - Memory impairment [Unknown]
  - Renal failure [Unknown]
  - Blood pressure abnormal [Unknown]
  - Cardiac failure congestive [Unknown]
  - Fear of death [Unknown]
